FAERS Safety Report 4870595-2 (Version None)
Quarter: 2005Q4

REPORT INFORMATION
  Report Type: 
  Country: None (occurrence: None)
  Receive Date: 20051228
  Receipt Date: 20051213
  Transmission Date: 20060501
  Serious: Yes (Other)
  Sender: FDA-Public Use
  Company Number: 2005-BP-21491RO

PATIENT
  Age: 6 Year
  Sex: Female

DRUGS (3)
  1. METHOTREXATE [Suspect]
     Indication: ACUTE LYMPHOCYTIC LEUKAEMIA
     Dosage: IT
     Route: 037
  2. CYTARABINE [Suspect]
     Indication: ACUTE LYMPHOCYTIC LEUKAEMIA
     Dosage: IT
     Route: 037
  3. PREDNISOLONE [Suspect]
     Indication: ACUTE LYMPHOCYTIC LEUKAEMIA
     Dosage: IT
     Route: 037

REACTIONS (7)
  - ARACHNOIDITIS [None]
  - MUSCULAR WEAKNESS [None]
  - MYELOPATHY [None]
  - NEUROLOGICAL SYMPTOM [None]
  - SOMATOSENSORY EVOKED POTENTIALS ABNORMAL [None]
  - URINARY INCONTINENCE [None]
  - URINARY RETENTION [None]
